FAERS Safety Report 21901967 (Version 2)
Quarter: 2023Q1

REPORT INFORMATION
  Report Type: Spontaneous
  Country: CA (occurrence: CA)
  Receive Date: 20230124
  Receipt Date: 20230310
  Transmission Date: 20230418
  Serious: Yes (Other)
  Sender: FDA-Public Use
  Company Number: CA-CELLTRION INC.-2022CA017631

PATIENT

DRUGS (6)
  1. INFLECTRA [Suspect]
     Active Substance: INFLIXIMAB-DYYB
     Indication: Colitis ulcerative
     Dosage: 700 MG (PATIENT SUPOSSED TO RECEIVE 10 MG/KG), WEEK 0, THEN 5MG/KG FOR WEEK 2,6 THEN Q 8 WEEKS
     Route: 042
     Dates: start: 20221027
  2. INFLECTRA [Suspect]
     Active Substance: INFLIXIMAB-DYYB
     Dosage: 1 DF, 10MG/KG AT WEEK 0, THEN 5MG/KG FOR WEEK 2,6 THEN Q 8 WEEKS
     Route: 042
     Dates: start: 20221027, end: 20221229
  3. INFLECTRA [Suspect]
     Active Substance: INFLIXIMAB-DYYB
     Dosage: 10 MG/KG (1 DF),  AT WEEK 0, THEN 5MG/KG FOR WEEK 2,6 THEN Q 8 WEEKS
     Route: 042
     Dates: start: 20221208
  4. INFLECTRA [Suspect]
     Active Substance: INFLIXIMAB-DYYB
     Dosage: 780 MG (RESCUE DOSE ON 29DEC2022 AT 10 MG/KG (IE. 780 MG))
     Route: 042
     Dates: start: 20221229
  5. INFLECTRA [Suspect]
     Active Substance: INFLIXIMAB-DYYB
     Dosage: 400 MG (5 MG/KG EVERY 4 WEEKS)
     Route: 042
     Dates: start: 20230302
  6. MESALAMINE [Concomitant]
     Active Substance: MESALAMINE
     Dosage: 1 DF DOSAGE INFO: UNKNOWN
     Route: 065
     Dates: start: 20220928

REACTIONS (6)
  - Clostridium difficile infection [Unknown]
  - Condition aggravated [Not Recovered/Not Resolved]
  - Drug ineffective [Unknown]
  - Weight increased [Unknown]
  - Off label use [Unknown]
  - Off label use [Unknown]

NARRATIVE: CASE EVENT DATE: 20220101
